FAERS Safety Report 10573305 (Version 1)
Quarter: 2014Q4

REPORT INFORMATION
  Report Type: Spontaneous
  Country: US (occurrence: None)
  Receive Date: 20141103
  Receipt Date: 20141103
  Transmission Date: 20150529
  Serious: Yes (Other)
  Sender: FDA-Public Use
  Company Number: 2014P1001544

PATIENT
  Age: 69 Year
  Sex: Female
  Weight: 64.9 kg

DRUGS (9)
  1. CIPROFLOXACIN TABLETS 500MG [Suspect]
     Active Substance: CIPROFLOXACIN
     Indication: CYSTITIS
     Route: 048
     Dates: start: 20100814, end: 201008
  2. VITAMIN C [Concomitant]
     Active Substance: ASCORBIC ACID
  3. FISH OIL [Concomitant]
     Active Substance: FISH OIL
  4. BABY ASPIRIN [Concomitant]
     Active Substance: ASPIRIN
  5. UNSPECIFIED VITAMINS [Concomitant]
  6. CALCIUM [Concomitant]
     Active Substance: CALCIUM
  7. RESTASIS EYE DROPS [Concomitant]
  8. MULTIVITAMIN [Concomitant]
     Active Substance: VITAMINS
  9. FOLIC ACID. [Concomitant]
     Active Substance: FOLIC ACID

REACTIONS (13)
  - Photosensitivity reaction [None]
  - Ligament sprain [None]
  - Pain in extremity [None]
  - Toxic neuropathy [None]
  - Back pain [None]
  - Dyskinesia [None]
  - Vestibular neuronitis [None]
  - Diarrhoea [None]
  - Carpal tunnel syndrome [None]
  - Neuralgia [None]
  - Hypersensitivity [None]
  - Sunburn [None]
  - Chills [None]

NARRATIVE: CASE EVENT DATE: 201008
